FAERS Safety Report 21494418 (Version 3)
Quarter: 2024Q2

REPORT INFORMATION
  Report Type: Report from Study
  Country: US (occurrence: US)
  Receive Date: 20221021
  Receipt Date: 20240607
  Transmission Date: 20240715
  Serious: Yes (Other)
  Sender: FDA-Public Use
  Company Number: US-ABBVIE-4169934

PATIENT
  Sex: Female

DRUGS (4)
  1. HUMIRA [Suspect]
     Active Substance: ADALIMUMAB
     Indication: Rheumatoid arthritis
     Dosage: CF?FORM STRENGTH 40 MILLIGRAM
     Route: 058
  2. PFIZER-BIONTECH COVID-19 VACCINE [Concomitant]
     Active Substance: TOZINAMERAN
     Indication: COVID-19 immunisation
     Dosage: ONCE ?1ST DOSE
     Route: 030
     Dates: start: 20210402, end: 20210402
  3. PFIZER-BIONTECH COVID-19 VACCINE [Concomitant]
     Active Substance: TOZINAMERAN
     Indication: COVID-19 immunisation
     Dosage: ONCE ?2ND DOSE
     Route: 030
     Dates: start: 20210502, end: 20210502
  4. PFIZER-BIONTECH COVID-19 VACCINE [Concomitant]
     Active Substance: TOZINAMERAN
     Indication: COVID-19 immunisation
     Dosage: ONCE ?BOOSTER DOSE
     Route: 030
     Dates: start: 20210823, end: 20210823

REACTIONS (4)
  - Hysterectomy [Unknown]
  - Spleen operation [Unknown]
  - Psoriasis [Unknown]
  - Bladder operation [Unknown]

NARRATIVE: CASE EVENT DATE: 20210101
